FAERS Safety Report 15819314 (Version 4)
Quarter: 2019Q3

REPORT INFORMATION
  Report Type: Spontaneous
  Country: BR (occurrence: BR)
  Receive Date: 20190114
  Receipt Date: 20190913
  Transmission Date: 20191004
  Serious: Yes (Other)
  Sender: FDA-Public Use
  Company Number: BR-ROCHE-2241175

PATIENT
  Age: 61 Year
  Sex: Female
  Weight: 68 kg

DRUGS (12)
  1. RANITIDINE. [Concomitant]
     Active Substance: RANITIDINE
     Route: 042
  2. DEXAMETHASONE. [Concomitant]
     Active Substance: DEXAMETHASONE
     Route: 042
  3. LEVOTHYROXINE. [Concomitant]
     Active Substance: LEVOTHYROXINE
     Indication: PRODUCT USED FOR UNKNOWN INDICATION
     Route: 065
  4. PURAN [Concomitant]
     Active Substance: LEVOTHYROXINE SODIUM
     Route: 065
  5. PERJETA [Suspect]
     Active Substance: PERTUZUMAB
     Indication: INVASIVE DUCTAL BREAST CARCINOMA
     Dosage: (DAY 1, WITH INTERVAL OF 21 DAYS BETWEEN CYCLES)
     Route: 042
     Dates: start: 20181031
  6. ONTAX [Suspect]
     Active Substance: PACLITAXEL
     Indication: INVASIVE DUCTAL BREAST CARCINOMA
     Dosage: (DAY 1, DAY 8 AND DAY 15, WITH INTERVAL OF 21 DAYS BETWEEN CYCLES)
     Route: 042
     Dates: start: 20181031
  7. HERCEPTIN [Suspect]
     Active Substance: TRASTUZUMAB
     Indication: INVASIVE DUCTAL BREAST CARCINOMA
     Dosage: (DAY 1, WITH INTERVAL OF 21 DAYS BETWEEN CYCLES)
     Route: 042
     Dates: start: 20181031
  8. AROMASIN [Concomitant]
     Active Substance: EXEMESTANE
     Route: 065
  9. DOMPERIDONE [Concomitant]
     Active Substance: DOMPERIDONE
  10. PREGABALIN. [Concomitant]
     Active Substance: PREGABALIN
     Route: 065
  11. KADCYLA [Suspect]
     Active Substance: ADO-TRASTUZUMAB EMTANSINE
     Indication: INVASIVE DUCTAL BREAST CARCINOMA
     Dosage: DILUTED IN 50 ML OF SALINE SOLUTION 0,9%
     Route: 042
     Dates: start: 20190328
  12. DIPHENHYDRAMINE. [Concomitant]
     Active Substance: DIPHENHYDRAMINE
     Route: 042

REACTIONS (4)
  - Arthralgia [Recovered/Resolved]
  - Neuropathy peripheral [Recovered/Resolved]
  - Pain in extremity [Recovered/Resolved]
  - Mucosal inflammation [Recovered/Resolved]

NARRATIVE: CASE EVENT DATE: 20181120
